FAERS Safety Report 6103125-8 (Version None)
Quarter: 2009Q1

REPORT INFORMATION
  Report Type: 
  Country: None (occurrence: None)
  Receive Date: 20090227
  Receipt Date: 20090220
  Transmission Date: 20090719
  Serious: Yes (Hospitalization)
  Sender: FDA-Public Use
  Company Number: DSA_33264_2009

PATIENT
  Sex: Female

DRUGS (2)
  1. LORAZEPAM [Suspect]
     Indication: DRUG USE FOR UNKNOWN INDICATION
     Dosage: (0.5 MG BID ORAL)
     Route: 048
     Dates: end: 20090219
  2. PIPAMPERONE (PIPAMPERONE) [Suspect]
     Indication: DRUG USE FOR UNKNOWN INDICATION
     Dosage: (120 MG 1X ORAL)
     Route: 048
     Dates: start: 20090219, end: 20090219

REACTIONS (4)
  - ACCIDENTAL EXPOSURE [None]
  - DIARRHOEA [None]
  - SOMNOLENCE [None]
  - WRONG DRUG ADMINISTERED [None]
